FAERS Safety Report 14762598 (Version 1)
Quarter: 2018Q2

REPORT INFORMATION
  Report Type: Spontaneous
  Country: US (occurrence: US)
  Receive Date: 20180409
  Receipt Date: 20180409
  Transmission Date: 20180711
  Serious: No
  Sender: FDA-Public Use
  Company Number: None

PATIENT
  Age: 28 Year
  Sex: Female
  Weight: 70.65 kg

DRUGS (1)
  1. NITROFURANTOIN. [Suspect]
     Active Substance: NITROFURANTOIN
     Indication: URINARY TRACT INFECTION
     Route: 048
     Dates: start: 20180402, end: 20180407

REACTIONS (6)
  - Musculoskeletal chest pain [None]
  - Sciatica [None]
  - Arthralgia [None]
  - Condition aggravated [None]
  - Myalgia [None]
  - Photophobia [None]

NARRATIVE: CASE EVENT DATE: 20180405
